FAERS Safety Report 4526614-6 (Version None)
Quarter: 2004Q4

REPORT INFORMATION
  Report Type: 
  Country: None (occurrence: None)
  Receive Date: 20041213
  Receipt Date: 20041202
  Transmission Date: 20050328
  Serious: Yes (Disabling)
  Sender: FDA-Public Use
  Company Number: 163-20785-04120095

PATIENT
  Age: 82 Year
  Sex: Male

DRUGS (1)
  1. THALOMID [Suspect]
     Dosage: ORAL
     Route: 048
     Dates: end: 20041006

REACTIONS (4)
  - ABASIA [None]
  - INCONTINENCE [None]
  - SPEECH DISORDER [None]
  - TREMOR [None]
